FAERS Safety Report 7375240-2 (Version None)
Quarter: 2011Q1

REPORT INFORMATION
  Report Type: 
  Country: None (occurrence: None)
  Receive Date: 20110325
  Receipt Date: 20110322
  Transmission Date: 20110831
  Serious: Yes (Other)
  Sender: FDA-Public Use
  Company Number: AU-ROCHE-766951

PATIENT

DRUGS (2)
  1. AVASTIN [Suspect]
     Route: 065
  2. FOLFOX REGIMEN [Concomitant]

REACTIONS (1)
  - PANCREATITIS [None]
